FAERS Safety Report 4703381-4 (Version None)
Quarter: 2005Q2

REPORT INFORMATION
  Report Type: 
  Country: None (occurrence: None)
  Receive Date: 20050624
  Receipt Date: 20050316
  Transmission Date: 20051028
  Serious: No
  Sender: FDA-Public Use
  Company Number: 2005BI003188

PATIENT
  Age: 58 Year
  Sex: Female

DRUGS (7)
  1. NATALIZUMAB [Suspect]
     Indication: MULTIPLE SCLEROSIS
     Dosage: 300 MG; QM; IV
     Route: 042
     Dates: start: 20050108, end: 20050208
  2. PROVIGIL [Concomitant]
  3. DETROL [Concomitant]
  4. AMBIEN [Concomitant]
  5. PROMETRIUM [Concomitant]
  6. DURAGESIC-100 [Concomitant]
  7. VYTORIN [Concomitant]

REACTIONS (2)
  - HYPERSENSITIVITY [None]
  - URTICARIA [None]
